FAERS Safety Report 9680966 (Version 1)
Quarter: 2013Q4

REPORT INFORMATION
  Report Type: Spontaneous
  Country: US (occurrence: US)
  Receive Date: 20131111
  Receipt Date: 20131111
  Transmission Date: 20140711
  Serious: Yes (Hospitalization)
  Sender: FDA-Public Use
  Company Number: US-AMGEN-USASP2013078584

PATIENT
  Age: 45 Year
  Sex: Female
  Weight: 64.4 kg

DRUGS (6)
  1. ENBREL [Suspect]
     Indication: PRODUCT USED FOR UNKNOWN INDICATION
     Dosage: 50 MG, EVERY WEEK
     Route: 058
  2. METHOTREXATE [Concomitant]
     Dosage: 2.5 MG, UNK
  3. FOLIC ACID [Concomitant]
     Dosage: UNK
  4. PROTONIX [Concomitant]
     Dosage: 20 MG, UNK
  5. ALEVE [Concomitant]
     Dosage: 220 MG, UNK
  6. EXCEDRIN                           /00110301/ [Concomitant]
     Dosage: UNK

REACTIONS (8)
  - Peptic ulcer [Unknown]
  - Nasal discomfort [Unknown]
  - Epistaxis [Unknown]
  - Asthenia [Unknown]
  - Fatigue [Unknown]
  - Mouth ulceration [Unknown]
  - Migraine [Unknown]
  - Headache [Unknown]
